FAERS Safety Report 5376119-8 (Version None)
Quarter: 2007Q3

REPORT INFORMATION
  Report Type: 
  Country: None (occurrence: None)
  Receive Date: 20070702
  Receipt Date: 20070621
  Transmission Date: 20080115
  Serious: Yes (Hospitalization)
  Sender: FDA-Public Use
  Company Number: B0476887A

PATIENT
  Age: 45 Year
  Sex: Female

DRUGS (5)
  1. LAMICTAL [Suspect]
     Indication: EPILEPSY
     Route: 048
     Dates: start: 20070521, end: 20070530
  2. KEPPRA [Suspect]
     Indication: EPILEPSY
     Dosage: 500MG VARIABLE DOSE
     Route: 048
     Dates: start: 20070401, end: 20070601
  3. PAROXETINE HCL [Concomitant]
     Route: 048
  4. CORTANCYL [Concomitant]
     Route: 048
  5. PERINDOPRIL ERBUMINE [Concomitant]
     Route: 065

REACTIONS (8)
  - ARTHRALGIA [None]
  - BLISTER [None]
  - DRUG RASH WITH EOSINOPHILIA AND SYSTEMIC SYMPTOMS [None]
  - LYMPHOPENIA [None]
  - MYALGIA [None]
  - PYREXIA [None]
  - RASH MACULO-PAPULAR [None]
  - SYSTEMIC LUPUS ERYTHEMATOSUS [None]
